FAERS Safety Report 23670733 (Version 1)
Quarter: 2024Q1

REPORT INFORMATION
  Report Type: Spontaneous
  Country: US (occurrence: US)
  Receive Date: 20240326
  Receipt Date: 20240326
  Transmission Date: 20240410
  Serious: No
  Sender: FDA-Public Use
  Company Number: US-BoehringerIngelheim-2024-BI-016545

PATIENT
  Age: 43 Year
  Sex: Female

DRUGS (1)
  1. ATROVENT [Suspect]
     Active Substance: IPRATROPIUM BROMIDE
     Indication: Seasonal allergy
     Dates: start: 20240320

REACTIONS (1)
  - Intentional overdose [Not Recovered/Not Resolved]

NARRATIVE: CASE EVENT DATE: 20240320
